FAERS Safety Report 15555321 (Version 1)
Quarter: 2018Q4

REPORT INFORMATION
  Report Type: Spontaneous
  Country: MX (occurrence: MX)
  Receive Date: 20181026
  Receipt Date: 20181026
  Transmission Date: 20190205
  Serious: Yes (Other)
  Sender: FDA-Public Use
  Company Number: MX-MYLANLABS-2018M1077834

PATIENT
  Age: 19 Year
  Sex: Male

DRUGS (12)
  1. SODIUM CARBOXYMETHYLCELLULOSE [Concomitant]
     Active Substance: CARBOXYMETHYLCELLULOSE SODIUM
     Indication: KERATOMILEUSIS
     Dosage: FOUR TIMES A DAY
     Route: 061
  2. SODIUM CHLORIDE. [Concomitant]
     Active Substance: SODIUM CHLORIDE
     Indication: PRODUCT USED FOR UNKNOWN INDICATION
     Route: 065
  3. TIMOLOL. [Suspect]
     Active Substance: TIMOLOL
     Indication: OCULAR HYPERTENSION
     Route: 065
  4. LOTEPREDNOL [Suspect]
     Active Substance: LOTEPREDNOL
     Indication: PRODUCT USED FOR UNKNOWN INDICATION
     Route: 065
  5. ACETAZOLAMIDE. [Concomitant]
     Active Substance: ACETAZOLAMIDE
     Indication: OCULAR HYPERTENSION
     Dosage: THREE TIMES A DAY
     Route: 048
  6. TRETINOIN. [Suspect]
     Active Substance: TRETINOIN
     Indication: ACNE
     Dosage: CHRONIC USE
     Route: 065
  7. PREDNISOLONE. [Suspect]
     Active Substance: PREDNISOLONE
     Indication: VISION BLURRED
     Route: 061
  8. GATIFLOXACIN. [Concomitant]
     Active Substance: GATIFLOXACIN
     Indication: KERATOMILEUSIS
     Dosage: 0.3% EYEDROPS THREE TIMES A DAY
     Route: 047
  9. DORZOLAMIDE HYDROCHLORIDE. [Suspect]
     Active Substance: DORZOLAMIDE HYDROCHLORIDE
     Indication: OCULAR HYPERTENSION
     Route: 061
  10. BRIMONIDINE TARTRATE. [Suspect]
     Active Substance: BRIMONIDINE TARTRATE
     Indication: OCULAR HYPERTENSION
     Route: 065
  11. FLUOROMETHOLONE ACETATE [Suspect]
     Active Substance: FLUOROMETHOLONE ACETATE
     Indication: KERATOMILEUSIS
     Dosage: FOUR TIMES A DAY
     Route: 065
  12. MANNITOL. [Suspect]
     Active Substance: MANNITOL
     Indication: OCULAR HYPERTENSION
     Route: 042

REACTIONS (9)
  - Optic neuropathy [Unknown]
  - Keratopathy [Recovering/Resolving]
  - Intraocular pressure increased [Recovered/Resolved]
  - Corneal opacity [Recovering/Resolving]
  - Depression suicidal [Unknown]
  - Visual acuity reduced [Unknown]
  - Drug ineffective [Unknown]
  - Pupillary disorder [Unknown]
  - Cataract subcapsular [Unknown]
